FAERS Safety Report 8533869-X (Version None)
Quarter: 2012Q3

REPORT INFORMATION
  Report Type: 
  Country: None (occurrence: None)
  Receive Date: 20120712
  Receipt Date: 20120622
  Transmission Date: 20120928
  Serious: Yes (Other)
  Sender: FDA-Public Use
  Company Number: E2B_00000261

PATIENT
  Age: 75 Year
  Sex: Female
  Weight: 68.0396 kg

DRUGS (1)
  1. AMLODIPINE BESYLATE [Suspect]
     Indication: HYPERTENSION
     Dosage: 5 MG (5 MG, 1 IN 1 D), PER ORAL
     Route: 048
     Dates: start: 20120415

REACTIONS (7)
  - CHOKING [None]
  - OROPHARYNGEAL PAIN [None]
  - GLOSSODYNIA [None]
  - TABLET PHYSICAL ISSUE [None]
  - DRUG DOSE OMISSION [None]
  - COUGH [None]
  - THROAT IRRITATION [None]
